FAERS Safety Report 19674159 (Version 1)
Quarter: 2021Q3

REPORT INFORMATION
  Report Type: Spontaneous
  Country: CL (occurrence: CL)
  Receive Date: 20210809
  Receipt Date: 20210809
  Transmission Date: 20211014
  Serious: Yes (Other)
  Sender: FDA-Public Use
  Company Number: CL-PURACAP-CL-2021EPCLIT00834

PATIENT
  Age: 8 Month
  Sex: Female

DRUGS (1)
  1. ERGOCALCIFEROL. [Suspect]
     Active Substance: ERGOCALCIFEROL
     Indication: VITAMIN D DEFICIENCY
     Dosage: 400 IU/L PLUS VITAMIN D DROPS 1200IU DAILY
     Route: 065

REACTIONS (2)
  - Hypervitaminosis D [Unknown]
  - Pyelonephritis acute [Unknown]
